FAERS Safety Report 6760475-X (Version None)
Quarter: 2010Q2

REPORT INFORMATION
  Report Type: 
  Country: None (occurrence: None)
  Receive Date: 20100601
  Receipt Date: 20100520
  Transmission Date: 20101027
  Serious: Yes (Other)
  Sender: FDA-Public Use
  Company Number: 1000013996

PATIENT
  Age: 73 Year
  Sex: Male

DRUGS (8)
  1. SAVELLA [Suspect]
     Indication: FIBROMYALGIA
     Dosage: 100 MG (50 MG,2 IN 1 D),ORAL
     Route: 048
     Dates: start: 20100422, end: 20100503
  2. PREVACID [Concomitant]
  3. LIPITOR [Concomitant]
  4. AVAPRO [Concomitant]
  5. VITAMIN D [Concomitant]
  6. ACTONEL [Concomitant]
  7. DIAZEPAM [Concomitant]
  8. SERTRALINE HCL [Concomitant]

REACTIONS (2)
  - POLLAKIURIA [None]
  - URINARY RETENTION [None]
